FAERS Safety Report 16981023 (Version 1)
Quarter: 2019Q4

REPORT INFORMATION
  Report Type: Spontaneous
  Country: US (occurrence: US)
  Receive Date: 20191031
  Receipt Date: 20191031
  Transmission Date: 20200122
  Serious: No
  Sender: FDA-Public Use
  Company Number: US-TOLMAR, INC.-19US000057

PATIENT
  Age: 47 Year
  Sex: Female

DRUGS (1)
  1. ELIGARD [Suspect]
     Active Substance: LEUPROLIDE ACETATE
     Indication: OESTROGEN RECEPTOR POSITIVE BREAST CANCER
     Dosage: 30 MG, EVERY 4 MONTHS
     Route: 065
     Dates: start: 20190516

REACTIONS (2)
  - Product use in unapproved indication [Unknown]
  - Product use issue [Unknown]

NARRATIVE: CASE EVENT DATE: 20190516
